FAERS Safety Report 7387065-2 (Version None)
Quarter: 2011Q1

REPORT INFORMATION
  Report Type: 
  Country: None (occurrence: None)
  Receive Date: 20110331
  Receipt Date: 20110322
  Transmission Date: 20110831
  Serious: Yes (Other)
  Sender: FDA-Public Use
  Company Number: FR-MERCK-1102FRA00096

PATIENT
  Age: 57 Year
  Sex: Male

DRUGS (4)
  1. BEVACIZUMAB [Suspect]
     Route: 065
     Dates: start: 20090925, end: 20100429
  2. LEVETIRACETAM [Concomitant]
     Route: 065
     Dates: start: 20100128
  3. EMEND [Suspect]
     Indication: PROPHYLAXIS OF NAUSEA AND VOMITING
     Route: 048
     Dates: start: 20100128, end: 20100128
  4. IRINOTECAN HCL [Suspect]
     Indication: GLIOBLASTOMA
     Route: 065
     Dates: start: 20100128, end: 20100429

REACTIONS (1)
  - EPILEPSY [None]
